FAERS Safety Report 6971758 (Version 3)
Quarter: 2012Q4

REPORT INFORMATION
  Report Type: 
  Country: MX (occurrence: MX)
  Receive Date: 20090417
  Receipt Date: 20121112
  Transmission Date: 20130627
  Serious: Yes (Other)
  Sender: FDA-Public Use
  Company Number: PHHY2009MX13268

PATIENT
  Age: 63 Year
  Sex: Female

DRUGS (6)
  1. EXFORGE [Suspect]
     Indication: HYPERTENSION
     Dosage: 1 DF (160/5 mg), per day
     Route: 048
     Dates: start: 200809
  2. AMARYL [Concomitant]
     Indication: DIABETES MELLITUS
     Dosage: 1 DF, per day
  3. GLIBENCLAMIDE [Concomitant]
     Indication: DIABETES MELLITUS
     Dosage: UNK UKN, UNK
  4. DIMEFORT-G [Concomitant]
     Indication: DIABETES MELLITUS
     Dosage: 1 UKN, daily
     Dates: start: 2008
  5. OMEGA [Concomitant]
     Dosage: 1 UKN, daily
     Dates: start: 2007
  6. VITAMINS [Concomitant]
     Dosage: 1 UKN, daily
     Dates: start: 20121101

REACTIONS (7)
  - Colitis [Recovered/Resolved]
  - Infection [Recovered/Resolved]
  - Flatulence [Recovered/Resolved]
  - Gastritis [Recovered/Resolved]
  - Abdominal pain upper [Recovered/Resolved]
  - Vomiting [Recovered/Resolved]
  - Diarrhoea [Recovered/Resolved]
